FAERS Safety Report 16583797 (Version 1)
Quarter: 2019Q3

REPORT INFORMATION
  Report Type: Spontaneous
  Country: US (occurrence: US)
  Receive Date: 20190603
  Receipt Date: 20190603
  Transmission Date: 20191004
  Serious: Yes (Hospitalization, Other)
  Sender: FDA-Public Use
  Company Number: None

PATIENT
  Age: 51 Year
  Sex: Male
  Weight: 70.31 kg

DRUGS (6)
  1. RAMIPRIL (PROPHYLACTIC) [Concomitant]
  2. COPPERTONE SPORT CLEAR SPF 50 [Suspect]
     Active Substance: AVOBENZONE\HOMOSALATE\OCTISALATE\OCTOCRYLENE\OXYBENZONE
     Indication: SUNBURN
     Dosage: ?          QUANTITY:50 SPF;?
     Route: 061
     Dates: start: 20190526, end: 20190526
  3. INSULIN [Concomitant]
     Active Substance: INSULIN NOS
  4. COPPERTONE SPORT CLEAR SPF 50 [Suspect]
     Active Substance: AVOBENZONE\HOMOSALATE\OCTISALATE\OCTOCRYLENE\OXYBENZONE
     Indication: PROPHYLAXIS
     Dosage: ?          QUANTITY:50 SPF;?
     Route: 061
     Dates: start: 20190526, end: 20190526
  5. WELLCHOL [Concomitant]
  6. CRESTOR [Concomitant]
     Active Substance: ROSUVASTATIN CALCIUM

REACTIONS (2)
  - Accidental exposure to product [None]
  - Corneal abrasion [None]

NARRATIVE: CASE EVENT DATE: 20190526
